FAERS Safety Report 23233178 (Version 3)
Quarter: 2025Q3

REPORT INFORMATION
  Report Type: Spontaneous
  Country: EU (occurrence: EU)
  Receive Date: 20231128
  Receipt Date: 20250710
  Transmission Date: 20251021
  Serious: Yes (Congenital Anomaly, Other)
  Sender: JUBILANT
  Company Number: None

PATIENT
  Sex: Male

DRUGS (3)
  1. LEVETIRACETAM [Suspect]
     Active Substance: LEVETIRACETAM
     Indication: Epilepsy
     Dosage: 1500 MG, 2 TIMES PER DAY
     Route: 064
     Dates: start: 20160115
  2. VALPROATE SODIUM [Suspect]
     Active Substance: VALPROATE SODIUM
     Indication: Epilepsy
     Dosage: 600 MG, 2 TIMES PER DAY
     Route: 064
     Dates: start: 20200326
  3. ZONISAMIDE [Suspect]
     Active Substance: ZONISAMIDE
     Indication: Epilepsy
     Dosage: 300 MG, 2 TIMES PER DAY
     Route: 064
     Dates: start: 20160115

REACTIONS (2)
  - Talipes [Not Recovered/Not Resolved]
  - Foetal exposure during pregnancy [Unknown]

NARRATIVE: CASE EVENT DATE: 20230101
